FAERS Safety Report 9438067 (Version 1)
Quarter: 2013Q3

REPORT INFORMATION
  Report Type: Spontaneous
  Country: US (occurrence: None)
  Receive Date: 20130802
  Receipt Date: 20130802
  Transmission Date: 20140515
  Serious: Yes (Hospitalization)
  Sender: FDA-Public Use
  Company Number: None

PATIENT
  Sex: Female
  Weight: 105.69 kg

DRUGS (2)
  1. BENLYSTA [Suspect]
     Indication: RHEUMATOID ARTHRITIS
     Dosage: INFUSE 920 MG INTRAVENOUSLY EVERY 4 WEEKS USING TWO 400 MG VIALS AND ONE 120 MG VIAL
     Route: 042
     Dates: start: 20130211
  2. BENLYSTA [Suspect]
     Indication: SYSTEMIC LUPUS ERYTHEMATOSUS
     Dosage: INFUSE 920 MG INTRAVENOUSLY EVERY 4 WEEKS USING TWO 400 MG VIALS AND ONE 120 MG VIAL
     Route: 042
     Dates: start: 20130211

REACTIONS (6)
  - Vomiting [None]
  - Diarrhoea haemorrhagic [None]
  - Confusional state [None]
  - Pneumonia aspiration [None]
  - Urinary tract infection [None]
  - Aggression [None]
